FAERS Safety Report 4560904-6 (Version None)
Quarter: 2005Q1

REPORT INFORMATION
  Report Type: 
  Country: None (occurrence: None)
  Receive Date: 20050126
  Receipt Date: 20050119
  Transmission Date: 20050727
  Serious: Yes (Hospitalization)
  Sender: FDA-Public Use
  Company Number: US-JNJFOC-20050105203

PATIENT
  Sex: Male
  Weight: 78.47 kg

DRUGS (5)
  1. DURAGESIC [Suspect]
     Route: 062
  2. METHADONE HCL [Concomitant]
     Indication: PAIN
     Route: 049
  3. DARVOCET [Concomitant]
     Route: 049
  4. DARVOCET [Concomitant]
     Indication: PAIN
     Dosage: EVERY 6 HOURS AS NEEDED
     Route: 049
  5. ALBUTEROL [Concomitant]
     Dosage: 3 TIMES A DAY
     Route: 055

REACTIONS (1)
  - PNEUMONIA [None]
